FAERS Safety Report 22357328 (Version 2)
Quarter: 2023Q4

REPORT INFORMATION
  Report Type: Spontaneous
  Country: AE (occurrence: AE)
  Receive Date: 20230524
  Receipt Date: 20231108
  Transmission Date: 20240110
  Serious: Yes (Hospitalization, Other)
  Sender: FDA-Public Use
  Company Number: AE-SA-2023SA157600

PATIENT
  Age: 15 Year
  Sex: Male

DRUGS (2)
  1. ALPROLIX [Suspect]
     Active Substance: EFTRENONACOG ALFA
     Indication: Factor IX deficiency
     Dosage: 3000 IU, QW
     Route: 042
     Dates: start: 20221113
  2. ALPROLIX [Suspect]
     Active Substance: EFTRENONACOG ALFA
     Indication: Factor IX deficiency
     Dosage: 3000 IU, QW
     Route: 042
     Dates: start: 20221113

REACTIONS (5)
  - Epistaxis [Recovered/Resolved]
  - Nasal dryness [Unknown]
  - Venous injury [Unknown]
  - Poor venous access [Unknown]
  - Infusion site pain [Unknown]

NARRATIVE: CASE EVENT DATE: 20230501
